FAERS Safety Report 7233342-5 (Version None)
Quarter: 2011Q1

REPORT INFORMATION
  Report Type: 
  Country: None (occurrence: None)
  Receive Date: 20110119
  Receipt Date: 20110107
  Transmission Date: 20110831
  Serious: Yes (Disabling, Other)
  Sender: FDA-Public Use
  Company Number: PHHY2011GB01362

PATIENT
  Age: 86 Year
  Sex: Male
  Weight: 95 kg

DRUGS (7)
  1. BENDROFLUMETHIAZIDE [Concomitant]
  2. SENNA [Concomitant]
  3. PRAVASTATIN SODIUM [Concomitant]
  4. WARFARIN SODIUM [Concomitant]
  5. TAMSULOSIN HYDROCHLORIDE [Suspect]
     Indication: PROSTATE CANCER
     Dosage: 40 UG, QD
     Dates: start: 20101004, end: 20101226
  6. ALCOHOL [Suspect]
  7. AMIODARONE HYDROCHLORIDE [Concomitant]

REACTIONS (4)
  - SYNCOPE [None]
  - FALL [None]
  - ELECTROCARDIOGRAM QT PROLONGED [None]
  - ORTHOSTATIC HYPOTENSION [None]
